FAERS Safety Report 7982714-X (Version None)
Quarter: 2011Q4

REPORT INFORMATION
  Report Type: 
  Country: None (occurrence: None)
  Receive Date: 20111215
  Receipt Date: 20111205
  Transmission Date: 20120403
  Serious: Yes (Hospitalization)
  Sender: FDA-Public Use
  Company Number: ES-BRISTOL-MYERS SQUIBB COMPANY-16274227

PATIENT
  Age: 58 Year
  Sex: Male

DRUGS (8)
  1. LAMIVUDINE + ZIDOVUDINE [Suspect]
     Dates: start: 20040901
  2. DIDANOSINE [Suspect]
     Dates: start: 20030101
  3. EFAVIRENZ [Suspect]
     Dates: start: 20030101
  4. TENOFOVIR [Suspect]
     Dates: start: 20040301
  5. ABACAVIR [Suspect]
     Dates: start: 20080601
  6. RITONAVIR [Suspect]
     Dates: start: 20040301
  7. STAVUDINE [Suspect]
     Dates: start: 20030101
  8. ATAZANAVIR [Suspect]
     Dates: start: 20040301

REACTIONS (1)
  - PORTAL HYPERTENSION [None]
